FAERS Safety Report 17644717 (Version 1)
Quarter: 2020Q2

REPORT INFORMATION
  Report Type: Spontaneous
  Country: US (occurrence: US)
  Receive Date: 20200407
  Receipt Date: 20200407
  Transmission Date: 20200713
  Serious: No
  Sender: FDA-Public Use
  Company Number: None

PATIENT
  Age: 65 Year
  Sex: Male
  Weight: 66.6 kg

DRUGS (1)
  1. DECARA 25,000IU D3 CAPSULES [Suspect]
     Active Substance: CHOLECALCIFEROL
     Indication: VITAMIN D DEFICIENCY
     Dosage: ?          QUANTITY:1 CAPSULE(S);?
     Route: 048
     Dates: start: 20200126, end: 20200226

REACTIONS (7)
  - Fatigue [None]
  - Incorrect dose administered [None]
  - Chest discomfort [None]
  - Product prescribing error [None]
  - Product dispensing error [None]
  - Headache [None]
  - Confusional state [None]

NARRATIVE: CASE EVENT DATE: 20200126
